FAERS Safety Report 8943655 (Version 2)
Quarter: 2013Q1

REPORT INFORMATION
  Report Type: Spontaneous
  Country: GB (occurrence: GB)
  Receive Date: 20121203
  Receipt Date: 20130115
  Transmission Date: 20140127
  Serious: Yes (Disabling, Other)
  Sender: FDA-Public Use
  Company Number: GB-MYLANLABS-2012S1024163

PATIENT
  Age: 70 Year
  Sex: Female

DRUGS (2)
  1. ALENDRONIC ACID [Suspect]
     Indication: OSTEOPOROSIS
     Route: 048
  2. ANTIBIOTICS [Concomitant]
     Indication: PRODUCT USED FOR UNKNOWN INDICATION

REACTIONS (7)
  - Osteonecrosis of jaw [Unknown]
  - Gait disturbance [Unknown]
  - Pain [Unknown]
  - Eating disorder [Unknown]
  - Weight decreased [Unknown]
  - Discomfort [Unknown]
  - Emotional distress [Unknown]
